FAERS Safety Report 23111615 (Version 1)
Quarter: 2023Q4

REPORT INFORMATION
  Report Type: Spontaneous
  Country: US (occurrence: US)
  Receive Date: 20231026
  Receipt Date: 20231026
  Transmission Date: 20240110
  Serious: No
  Sender: FDA-Public Use
  Company Number: US-TEVA-2023-US-2935191

PATIENT
  Age: 53 Year
  Sex: Male

DRUGS (2)
  1. SCOPOLAMINE [Suspect]
     Active Substance: SCOPOLAMINE
     Indication: Motion sickness
     Dosage: STRENGTH: 1 MG / 3 DAYS
     Route: 062
     Dates: start: 20230921, end: 202309
  2. SCOPOLAMINE [Suspect]
     Active Substance: SCOPOLAMINE
     Dosage: STRENGTH: 1 MG/72HR
     Route: 062
     Dates: start: 20230921

REACTIONS (6)
  - Dysgeusia [Unknown]
  - Feeling abnormal [Unknown]
  - Malaise [Unknown]
  - Adverse event [Unknown]
  - Prescription drug used without a prescription [Unknown]
  - Product quality issue [Unknown]

NARRATIVE: CASE EVENT DATE: 20230901
